FAERS Safety Report 8987883 (Version 1)
Quarter: 2012Q4

REPORT INFORMATION
  Report Type: 
  Country: FR (occurrence: FR)
  Receive Date: 20121227
  Receipt Date: 20121227
  Transmission Date: 20130627
  Serious: Yes (Death)
  Sender: FDA-Public Use
  Company Number: FR-VIIV HEALTHCARE LIMITED-B0851380C

PATIENT

DRUGS (3)
  1. COMBIVIR [Suspect]
     Indication: HIV INFECTION
     Dosage: 1TAB Twice per day
     Route: 064
  2. VIRAMUNE [Suspect]
     Indication: HIV INFECTION
     Dosage: 1UNIT Twice per day
     Route: 064
  3. ZELITREX [Concomitant]
     Indication: GENITAL HERPES
     Route: 064

REACTIONS (3)
  - Foetal malformation [Fatal]
  - Foetal death [Fatal]
  - Foetal exposure during pregnancy [Unknown]
